FAERS Safety Report 10284681 (Version 1)
Quarter: 2014Q3

REPORT INFORMATION
  Report Type: Spontaneous
  Country: US (occurrence: None)
  Receive Date: 20140703
  Receipt Date: 20140703
  Transmission Date: 20150326
  Serious: Yes (Other)
  Sender: FDA-Public Use
  Company Number: None

PATIENT
  Age: 32 Year
  Sex: Female
  Weight: 49.9 kg

DRUGS (2)
  1. S.T. 37 HEXYLRESOURCINOL 0.1% DIST BY NUMARK [Suspect]
     Active Substance: HEXYLRESORCINOL
     Indication: APHTHOUS STOMATITIS
     Dosage: 1TSP ONCE SWISH AND SPIT
     Dates: start: 20140624, end: 20140624
  2. S.T. 37 HEXYLRESOURCINOL 0.1% DIST BY NUMARK [Suspect]
     Active Substance: HEXYLRESORCINOL
     Indication: ORAL PAIN
     Dosage: 1TSP ONCE SWISH AND SPIT
     Dates: start: 20140624, end: 20140624

REACTIONS (7)
  - Ageusia [None]
  - Thermal burn [None]
  - Tongue disorder [None]
  - Hypoaesthesia oral [None]
  - Paraesthesia oral [None]
  - Stomatitis [None]
  - Chemical injury [None]

NARRATIVE: CASE EVENT DATE: 20140624
